FAERS Safety Report 7231659-1 (Version None)
Quarter: 2011Q1

REPORT INFORMATION
  Report Type: 
  Country: None (occurrence: None)
  Receive Date: 20110118
  Receipt Date: 20110110
  Transmission Date: 20110831
  Serious: Yes (Hospitalization)
  Sender: FDA-Public Use
  Company Number: US-ASTRAZENECA-2011SE01604

PATIENT
  Age: 97 Year
  Sex: Female
  Weight: 61.2 kg

DRUGS (8)
  1. SEROQUEL [Suspect]
     Route: 048
     Dates: start: 20110103, end: 20110107
  2. TEMAZEPAM [Concomitant]
     Indication: INSOMNIA
     Route: 065
  3. PLAVIX [Concomitant]
     Indication: CEREBROVASCULAR ACCIDENT
     Route: 065
  4. OMEPRAZOLE [Concomitant]
     Route: 065
  5. SEROQUEL [Suspect]
     Indication: INSOMNIA
     Route: 048
     Dates: start: 20050101, end: 20110103
  6. SEROQUEL [Suspect]
     Indication: AGITATION
     Route: 048
     Dates: start: 20050101, end: 20110103
  7. SEROQUEL [Suspect]
     Route: 048
     Dates: start: 20110103, end: 20110107
  8. TRAZODONE HCL [Concomitant]
     Indication: INSOMNIA
     Route: 065

REACTIONS (4)
  - ACCIDENT AT HOME [None]
  - MIDDLE INSOMNIA [None]
  - WRONG TECHNIQUE IN DRUG USAGE PROCESS [None]
  - JAUNDICE [None]
